FAERS Safety Report 16715881 (Version 1)
Quarter: 2019Q3

REPORT INFORMATION
  Report Type: Spontaneous
  Country: US (occurrence: US)
  Receive Date: 20190819
  Receipt Date: 20190819
  Transmission Date: 20191005
  Serious: No
  Sender: FDA-Public Use
  Company Number: US-PFIZER INC-2019351747

PATIENT
  Age: 38 Year
  Sex: Male
  Weight: 17.23 kg

DRUGS (2)
  1. CETIRIZINE [Suspect]
     Active Substance: CETIRIZINE HYDROCHLORIDE
     Dosage: UNK
  2. LORATADINE. [Suspect]
     Active Substance: LORATADINE
     Indication: SWELLING
     Dosage: UNK

REACTIONS (2)
  - Intentional product misuse [Unknown]
  - Drug effective for unapproved indication [Unknown]
